FAERS Safety Report 7481710-9 (Version None)
Quarter: 2011Q2

REPORT INFORMATION
  Report Type: 
  Country: None (occurrence: None)
  Receive Date: 20110516
  Receipt Date: 20110506
  Transmission Date: 20111010
  Serious: Yes (Hospitalization)
  Sender: FDA-Public Use
  Company Number: A0781622A

PATIENT
  Age: 62 Year
  Sex: Female

DRUGS (7)
  1. PRAVACHOL [Concomitant]
  2. SYNTHROID [Concomitant]
  3. PREMARIN [Concomitant]
  4. AVANDIA [Suspect]
     Dosage: 4MG PER DAY
     Route: 048
     Dates: start: 20020701, end: 20021201
  5. LESCOL [Concomitant]
  6. PRANDIN [Concomitant]
  7. NEURONTIN [Concomitant]

REACTIONS (4)
  - CARDIAC FAILURE CONGESTIVE [None]
  - CORONARY ARTERY DISEASE [None]
  - ISCHAEMIC CARDIOMYOPATHY [None]
  - ACUTE MYOCARDIAL INFARCTION [None]
